FAERS Safety Report 22235298 (Version 2)
Quarter: 2023Q2

REPORT INFORMATION
  Report Type: Spontaneous
  Country: US (occurrence: US)
  Receive Date: 20230420
  Receipt Date: 20230620
  Transmission Date: 20230721
  Serious: Yes (Other)
  Sender: FDA-Public Use
  Company Number: US-BAYER-2023A049512

PATIENT
  Age: 35 Year
  Sex: Female

DRUGS (1)
  1. SKYLA [Suspect]
     Active Substance: LEVONORGESTREL
     Indication: Intrauterine contraception
     Dosage: 14?G/DAY
     Route: 015
     Dates: start: 20201230, end: 202104

REACTIONS (3)
  - Abnormal uterine bleeding [Not Recovered/Not Resolved]
  - Blood loss anaemia [None]
  - Intentional medical device removal by patient [None]

NARRATIVE: CASE EVENT DATE: 20210401
